FAERS Safety Report 5023921-8 (Version None)
Quarter: 2006Q2

REPORT INFORMATION
  Report Type: 
  Country: None (occurrence: None)
  Receive Date: 20060612
  Receipt Date: 20060602
  Transmission Date: 20061013
  Serious: Yes (Hospitalization)
  Sender: FDA-Public Use
  Company Number: SE-BOEHRINGER INGELHEIM PHARMACEUTICALS, INC.-2006-SW-00249SW

PATIENT
  Sex: Male

DRUGS (2)
  1. SIFROL TAB. 0.7 MG [Suspect]
     Indication: PARKINSON'S DISEASE
     Route: 048
     Dates: start: 20050101, end: 20060309
  2. MADOPARK [Concomitant]

REACTIONS (1)
  - OBSESSIVE THOUGHTS [None]
